FAERS Safety Report 4480926-3 (Version None)
Quarter: 2004Q4

REPORT INFORMATION
  Report Type: 
  Country: None (occurrence: None)
  Receive Date: 20041020
  Receipt Date: 20041020
  Transmission Date: 20050328
  Serious: No
  Sender: FDA-Public Use
  Company Number: None

PATIENT
  Sex: Female
  Weight: 46.3 kg

DRUGS (3)
  1. HEPARIN [Suspect]
     Indication: DEEP VENOUS THROMBOSIS PROPHYLAXIS
     Dosage: 200000 UNITS/500 ML PREMED IV 16.3 ML /.HR
     Route: 042
     Dates: start: 20040821, end: 20040825
  2. ASPIRIN [Concomitant]
  3. DIPYRIDAMOLE [Concomitant]

REACTIONS (2)
  - EPISTAXIS [None]
  - HAEMATURIA [None]
